FAERS Safety Report 17806330 (Version 1)
Quarter: 2020Q2

REPORT INFORMATION
  Report Type: Spontaneous
  Country: DE (occurrence: DE)
  Receive Date: 20200520
  Receipt Date: 20200520
  Transmission Date: 20200714
  Serious: Yes (Hospitalization)
  Sender: FDA-Public Use
  Company Number: DE-TEVA-2020-DE-1236399

PATIENT
  Age: 63 Year
  Sex: Female

DRUGS (2)
  1. OMEPRAZOL [Suspect]
     Active Substance: OMEPRAZOLE
     Dosage: 80 MILLIGRAM DAILY;  1-0-1-0
  2. PRAMIPEXOL [Concomitant]
     Active Substance: PRAMIPEXOLE
     Dosage: .09 MILLIGRAM DAILY; 0.088 MG, 0-0-1-0

REACTIONS (1)
  - Ear pain [Unknown]

NARRATIVE: CASE EVENT DATE: 20200108
